FAERS Safety Report 7981079-7 (Version None)
Quarter: 2011Q4

REPORT INFORMATION
  Report Type: 
  Country: None (occurrence: None)
  Receive Date: 20111215
  Receipt Date: 20111205
  Transmission Date: 20120403
  Serious: No
  Sender: FDA-Public Use
  Company Number: 2007BI013814

PATIENT
  Age: 44 Year
  Sex: Female

DRUGS (6)
  1. TYSABRI [Suspect]
     Route: 042
     Dates: start: 20111109
  2. TYSABRI [Suspect]
     Route: 042
     Dates: start: 20050101, end: 20050201
  3. TYSABRI [Suspect]
     Route: 042
     Dates: start: 20050214
  4. TYSABRI [Suspect]
     Indication: MULTIPLE SCLEROSIS
     Route: 042
     Dates: start: 20070427, end: 20070626
  5. AVONEX [Concomitant]
     Indication: MULTIPLE SCLEROSIS
     Route: 030
     Dates: start: 20070101
  6. AVONEX [Concomitant]
     Route: 030
     Dates: start: 20010101

REACTIONS (3)
  - CHILLS [None]
  - FLUSHING [None]
  - ERYTHEMA [None]
